FAERS Safety Report 9851224 (Version 2)
Quarter: 2014Q1

REPORT INFORMATION
  Report Type: Report from Study
  Country: US (occurrence: US)
  Receive Date: 20140128
  Receipt Date: 20140331
  Transmission Date: 20141002
  Serious: Yes (Death)
  Sender: FDA-Public Use
  Company Number: US-ABBVIE-14P-163-1194148-00

PATIENT
  Age: 70 Year
  Sex: Male

DRUGS (2)
  1. HUMIRA [Suspect]
     Indication: CROHN^S DISEASE
     Dates: start: 20131226, end: 20131226
  2. HUMIRA [Suspect]
     Dates: start: 20140109, end: 20140109

REACTIONS (5)
  - Pyrexia [Fatal]
  - Sepsis [Fatal]
  - Syncope [Fatal]
  - Headache [Fatal]
  - Hypotension [Fatal]
